FAERS Safety Report 10950247 (Version 2)
Quarter: 2015Q3

REPORT INFORMATION
  Report Type: Spontaneous
  Country: US (occurrence: US)
  Receive Date: 20150324
  Receipt Date: 20150901
  Transmission Date: 20151125
  Serious: Yes (Hospitalization, Congenital Anomaly)
  Sender: FDA-Public Use
  Company Number: US-ELI_LILLY_AND_COMPANY-US201503005340

PATIENT
  Sex: Female

DRUGS (3)
  1. PROZAC [Suspect]
     Active Substance: FLUOXETINE HYDROCHLORIDE
     Indication: PRODUCT USED FOR UNKNOWN INDICATION
     Route: 065
  2. BENADRYL [Concomitant]
     Active Substance: DIPHENHYDRAMINE HYDROCHLORIDE
     Route: 064
  3. PRENATAL                           /00231801/ [Concomitant]
     Route: 064

REACTIONS (5)
  - Tendinous contracture [Recovered/Resolved]
  - Talipes [Recovering/Resolving]
  - Exposure during pregnancy [Recovered/Resolved]
  - Congenital multiplex arthrogryposis [Recovering/Resolving]
  - Limb asymmetry [Recovered/Resolved]
